FAERS Safety Report 9557032 (Version 1)
Quarter: 2013Q3

REPORT INFORMATION
  Report Type: Spontaneous
  Country: US (occurrence: None)
  Receive Date: 20130815
  Receipt Date: 20130815
  Transmission Date: 20140515
  Serious: Yes (Other)
  Sender: FDA-Public Use
  Company Number: ADR-2012-02058

PATIENT
  Age: 42 Year
  Sex: Male

DRUGS (2)
  1. LIORESAL [Suspect]
     Indication: MUSCLE SPASTICITY
     Dosage: 615 TO 750 MCG/DAY
  2. LIORESAL [Suspect]
     Indication: SPINAL CORD INJURY
     Dosage: 615 TO 750 MCG/DAY

REACTIONS (5)
  - Drug withdrawal syndrome [None]
  - Pruritus [None]
  - Muscle spasms [None]
  - Muscle spasticity [None]
  - Pain [None]
